FAERS Safety Report 5977769-8 (Version None)
Quarter: 2008Q4

REPORT INFORMATION
  Report Type: 
  Country: None (occurrence: None)
  Receive Date: 20081203
  Receipt Date: 20081125
  Transmission Date: 20090506
  Serious: No
  Sender: FDA-Public Use
  Company Number: FR-ELI_LILLY_AND_COMPANY-FR200809002890

PATIENT
  Age: 77 Year
  Sex: Male
  Weight: 85 kg

DRUGS (6)
  1. CIALIS [Suspect]
     Indication: ERECTILE DYSFUNCTION
     Dosage: 20 MG, 2/W
     Route: 048
     Dates: start: 20070301, end: 20080101
  2. CIALIS [Suspect]
     Dosage: 5 MG, DAILY (1/D)
     Route: 048
     Dates: start: 20080101, end: 20080801
  3. SYMBICORT [Concomitant]
     Dosage: UNK, UNKNOWN
     Route: 055
  4. VENTOLIN [Concomitant]
     Dosage: UNK, UNKNOWN
     Route: 055
  5. ZOLPIDEM [Concomitant]
     Dosage: DAILY
     Route: 048
  6. PAROXETINE HCL [Concomitant]
     Dosage: 1 D/F, DAILY (1/D)
     Route: 048

REACTIONS (2)
  - VISION BLURRED [None]
  - VISUAL ACUITY REDUCED [None]
